FAERS Safety Report 13965895 (Version 1)
Quarter: 2017Q3

REPORT INFORMATION
  Report Type: Spontaneous
  Country: US (occurrence: US)
  Receive Date: 20170913
  Receipt Date: 20170913
  Transmission Date: 20171128
  Serious: Yes (Other)
  Sender: FDA-Public Use
  Company Number: US-SUNOVION-2017SUN003999

PATIENT
  Sex: Male

DRUGS (3)
  1. LITHIUM. [Concomitant]
     Active Substance: LITHIUM
     Dosage: UNK
  2. LAMICTAL [Concomitant]
     Active Substance: LAMOTRIGINE
     Dosage: UNK
  3. LATUDA [Suspect]
     Active Substance: LURASIDONE HYDROCHLORIDE
     Indication: BIPOLAR I DISORDER
     Dosage: UNK
     Route: 048
     Dates: start: 201609, end: 201609

REACTIONS (8)
  - Coordination abnormal [Unknown]
  - Weight decreased [Unknown]
  - Memory impairment [Unknown]
  - Apathy [Unknown]
  - Diarrhoea [Unknown]
  - Headache [Unknown]
  - Mental disorder [Unknown]
  - Confusional state [Unknown]
